FAERS Safety Report 10386528 (Version 1)
Quarter: 2014Q1

REPORT INFORMATION
  Report Type: Spontaneous
  Country: US (occurrence: None)
  Receive Date: 20140306
  Receipt Date: 20140306
  Transmission Date: 20141002
  Serious: Yes (Other)
  Sender: FDA-Public Use
  Company Number: 163-21880-12103133

PATIENT
  Age: 79 Year
  Sex: Female

DRUGS (1)
  1. REVLIMID ( (LENALIDOMIDE) (15 MILLIGRAM, CAPSULES) [Suspect]
     Indication: PLASMA CELL MYELOMA
     Dosage: 21 IN 28 D
     Route: 048
     Dates: start: 201210

REACTIONS (3)
  - Hallucination [None]
  - Confusional state [None]
  - Infection [None]
